FAERS Safety Report 14771337 (Version 1)
Quarter: 2018Q2

REPORT INFORMATION
  Report Type: Spontaneous
  Country: US (occurrence: US)
  Receive Date: 20180417
  Receipt Date: 20180417
  Transmission Date: 20180711
  Serious: No
  Sender: FDA-Public Use
  Company Number: US-ALLERGAN-1716494US

PATIENT
  Sex: Female
  Weight: 61.22 kg

DRUGS (2)
  1. LATISSE [Suspect]
     Active Substance: BIMATOPROST
     Dosage: 1 GTT, QHS
     Route: 061
     Dates: start: 201611, end: 201704
  2. LATISSE [Suspect]
     Active Substance: BIMATOPROST
     Indication: GROWTH OF EYELASHES
     Dosage: UNK
     Route: 065
     Dates: start: 201612

REACTIONS (1)
  - Drug ineffective [Unknown]
